FAERS Safety Report 10174088 (Version 1)
Quarter: 2014Q2

REPORT INFORMATION
  Report Type: Spontaneous
  Country: US (occurrence: US)
  Receive Date: 20140515
  Receipt Date: 20140515
  Transmission Date: 20141212
  Serious: No
  Sender: FDA-Public Use
  Company Number: US-JNJFOC-20140503477

PATIENT
  Sex: Female
  Weight: 56.25 kg

DRUGS (10)
  1. SANDOZ FENTANYL TRANSDERMAL SYSTEM [Suspect]
     Indication: PRODUCT USED FOR UNKNOWN INDICATION
     Dosage: 100 UG/HR AND 50 UG/HR PATCH
     Route: 062
  2. SANDOZ FENTANYL TRANSDERMAL SYSTEM [Suspect]
     Indication: PRODUCT USED FOR UNKNOWN INDICATION
     Route: 062
  3. ACTONEL [Concomitant]
     Indication: OSTEOPOROSIS
     Dosage: 100 UG/HR AND 50 UG/HR PATCH
     Route: 048
     Dates: start: 2014
  4. OXYCODONE [Concomitant]
     Indication: PAIN
     Dosage: 100 UG/HR AND 50 UG/HR PATCH
     Route: 048
  5. VITAMIN D3 [Concomitant]
     Indication: PRODUCT USED FOR UNKNOWN INDICATION
     Dosage: 100 UG/HR AND 50 UG/HR PATCH
     Route: 048
  6. VITAMIN B6 [Concomitant]
     Indication: PRODUCT USED FOR UNKNOWN INDICATION
     Dosage: 100 UG/HR AND 50 UG/HR PATCH
     Route: 048
  7. SENNA [Concomitant]
     Indication: CONSTIPATION
     Dosage: 100 UG/HR AND 50 UG/HR PATCH
     Route: 048
  8. COLACE [Concomitant]
     Indication: CONSTIPATION
     Dosage: 100 UG/HR AND 50 UG/HR PATCH
     Route: 048
  9. ANASTROZOLE [Concomitant]
     Indication: BREAST CANCER
     Dosage: 100 UG/HR AND 50 UG/HR PATCH
     Route: 048
  10. EFFEXOR [Concomitant]
     Indication: DEPRESSION
     Dosage: 100 UG/HR AND 50 UG/HR PATCH
     Route: 065

REACTIONS (4)
  - Wrong technique in drug usage process [Unknown]
  - Inadequate analgesia [Recovered/Resolved]
  - Product quality issue [Unknown]
  - Product quality issue [Unknown]
